FAERS Safety Report 6047126-7 (Version None)
Quarter: 2009Q1

REPORT INFORMATION
  Report Type: 
  Country: None (occurrence: None)
  Receive Date: 20090122
  Receipt Date: 20090113
  Transmission Date: 20090719
  Serious: Yes (Hospitalization)
  Sender: FDA-Public Use
  Company Number: PHHY2009DE01535

PATIENT
  Age: 84 Year
  Sex: Female

DRUGS (9)
  1. METOPROLOL TARTRATE [Suspect]
     Indication: HYPERTENSION
     Dosage: 100 MG, 2 IN ONE DAY
     Route: 048
  2. LISINOPRIL AND HYDROCHLOROTHIAZIDE [Suspect]
     Dosage: UNK
  3. AMLODIPINE [Suspect]
     Indication: HYPERTENSION
     Dosage: 5 MG
  4. NITROGLYCERIN [Suspect]
     Indication: HYPERTENSION
     Dosage: 0.41 MG, 1 IN 1 DAY
     Route: 002
     Dates: end: 20080612
  5. MOXONIDINE [Suspect]
     Indication: HYPERTENSION
     Dosage: .2 MG
  6. ACETYLSALICYLIC ACID SRT [Concomitant]
     Indication: INFARCTION
     Dosage: 100 MG, 1 IN 1 DAY
     Route: 048
     Dates: start: 20010101
  7. KEPPRA [Concomitant]
     Indication: INFARCTION
     Dosage: 500 MG, 2 IN 1 DAY
     Route: 048
  8. PANTOZOL [Concomitant]
     Indication: PROPHYLAXIS
     Dosage: 20 MG, 1 IN ONE DAY
     Route: 048
  9. SIMVASTATIN [Concomitant]
     Indication: THROMBOSIS PROPHYLAXIS
     Dosage: 20 MG, 1 IN ONE DAY
     Route: 048

REACTIONS (3)
  - BLOOD SODIUM DECREASED [None]
  - HAEMATOCRIT DECREASED [None]
  - SYNCOPE [None]
